FAERS Safety Report 14671651 (Version 2)
Quarter: 2018Q2

REPORT INFORMATION
  Report Type: Spontaneous
  Country: US (occurrence: US)
  Receive Date: 20180323
  Receipt Date: 20180418
  Transmission Date: 20180711
  Serious: No
  Sender: FDA-Public Use
  Company Number: US-ELI_LILLY_AND_COMPANY-US201803005552

PATIENT
  Sex: Female

DRUGS (2)
  1. LAMICTAL [Concomitant]
     Active Substance: LAMOTRIGINE
     Dosage: 200 MG, DAILY
     Route: 065
  2. ZYPREXA [Suspect]
     Active Substance: OLANZAPINE
     Indication: BIPOLAR I DISORDER
     Dosage: 5 MG, EACH EVENING
     Route: 065
     Dates: start: 2010

REACTIONS (3)
  - Insomnia [Unknown]
  - Feeling abnormal [Unknown]
  - Somnolence [Unknown]
